FAERS Safety Report 4827534-X (Version None)
Quarter: 2005Q4

REPORT INFORMATION
  Report Type: 
  Country: None (occurrence: None)
  Receive Date: 20051114
  Receipt Date: 20051005
  Transmission Date: 20060501
  Serious: Yes (Death, Other)
  Sender: FDA-Public Use
  Company Number: PHBS2005ZA16116

PATIENT
  Age: 33 Year
  Sex: Male
  Weight: 95 kg

DRUGS (3)
  1. PROVIGIL [Suspect]
     Indication: NARCOLEPSY
     Route: 065
     Dates: start: 20050301, end: 20050901
  2. DIOTROXIN [Concomitant]
     Dates: start: 19970101, end: 20050101
  3. RITALIN [Suspect]
     Indication: NARCOLEPSY
     Dosage: UNK, UNK
     Route: 048
     Dates: start: 19950101, end: 20040101

REACTIONS (3)
  - CARDIOMEGALY [None]
  - HYPERTENSION [None]
  - MYOCARDIAL INFARCTION [None]
